FAERS Safety Report 12787029 (Version 1)
Quarter: 2016Q3

REPORT INFORMATION
  Report Type: Spontaneous
  Country: US (occurrence: US)
  Receive Date: 20160927
  Receipt Date: 20160927
  Transmission Date: 20161109
  Serious: Yes (Other)
  Sender: FDA-Public Use
  Company Number: US-ASTRAZENECA-2016SF00756

PATIENT
  Age: 61 Year
  Sex: Female

DRUGS (11)
  1. ADRIAMYCIN [Concomitant]
     Active Substance: DOXORUBICIN HYDROCHLORIDE
  2. THYMERSOL [Concomitant]
  3. IBRANCE [Suspect]
     Active Substance: PALBOCICLIB
     Indication: BREAST CANCER METASTATIC
     Route: 048
     Dates: start: 20160610
  4. CYTOXAN [Concomitant]
     Active Substance: CYCLOPHOSPHAMIDE
  5. ARIMIDEX [Suspect]
     Active Substance: ANASTROZOLE
     Dosage: 100.0MG UNKNOWN
     Route: 048
     Dates: start: 200910
  6. XGEVA [Concomitant]
     Active Substance: DENOSUMAB
     Dosage: EVERY THREE MONTHS
     Dates: start: 201311
  7. LETROZOLE. [Concomitant]
     Active Substance: LETROZOLE
     Dates: start: 20160610
  8. XGEVA [Concomitant]
     Active Substance: DENOSUMAB
     Dosage: EVERY THREE MONTHS
     Dates: start: 201603
  9. DOXYCYLLINE [Concomitant]
  10. FASLODEX [Suspect]
     Active Substance: FULVESTRANT
     Indication: BREAST CANCER METASTATIC
     Route: 030
     Dates: start: 201311, end: 201603
  11. TAXOL [Concomitant]
     Active Substance: PACLITAXEL

REACTIONS (6)
  - Lymphoedema [Unknown]
  - Back pain [Unknown]
  - Metastases to bone [Unknown]
  - Hot flush [Unknown]
  - Pulmonary mass [Unknown]
  - Malignant neoplasm progression [Unknown]
